FAERS Safety Report 7821992-4 (Version None)
Quarter: 2011Q4

REPORT INFORMATION
  Report Type: 
  Country: None (occurrence: None)
  Receive Date: 20111018
  Receipt Date: 20101216
  Transmission Date: 20120403
  Serious: No
  Sender: FDA-Public Use
  Company Number: US-ASTRAZENECA-2010SE59630

PATIENT
  Sex: Female
  Weight: 54.4 kg

DRUGS (8)
  1. IPRATROPIUM BROMIDE [Concomitant]
  2. ALBUTEROL [Concomitant]
  3. PREDNISONE [Concomitant]
  4. GLUCOSAMINE CHONDROITIN [Concomitant]
  5. SYMBICORT [Suspect]
     Indication: CHRONIC OBSTRUCTIVE PULMONARY DISEASE
     Dosage: 640 UG BID
     Route: 055
  6. XANAX [Concomitant]
  7. OXYGEN [Concomitant]
  8. ASPIRIN [Concomitant]

REACTIONS (4)
  - DYSPNOEA [None]
  - INCORRECT DOSE ADMINISTERED BY DEVICE [None]
  - SLUGGISHNESS [None]
  - PANIC ATTACK [None]
